FAERS Safety Report 9974747 (Version 1)
Quarter: 2014Q1

REPORT INFORMATION
  Report Type: Report from Study
  Country: US (occurrence: US)
  Receive Date: 20140306
  Receipt Date: 20140306
  Transmission Date: 20141002
  Serious: No
  Sender: FDA-Public Use
  Company Number: US-ABBVIE-13P-163-1156680-00

PATIENT
  Age: 74 Year
  Sex: Female
  Weight: 72.64 kg

DRUGS (11)
  1. HUMIRA [Suspect]
     Indication: CROHN^S DISEASE
     Dates: start: 201203, end: 201203
  2. HUMIRA [Suspect]
     Dates: start: 201303, end: 201303
  3. HUMIRA [Suspect]
     Dates: start: 201304
  4. AMLODIPINE [Concomitant]
     Indication: BLOOD PRESSURE
  5. LISINOPRIL [Concomitant]
     Indication: BLOOD PRESSURE
  6. CITRICAL [Concomitant]
     Indication: VITAMIN SUPPLEMENTATION
  7. SIMVASTATIN [Concomitant]
     Indication: BLOOD CHOLESTEROL INCREASED
  8. CENTRUM SILVER [Concomitant]
     Indication: VITAMIN SUPPLEMENTATION
  9. GLUCOSAMINE [Concomitant]
     Indication: NUTRITIONAL SUPPLEMENTATION
  10. SYNTHROID [Concomitant]
     Indication: HYPOTHYROIDISM
  11. IMURAN [Concomitant]
     Indication: CROHN^S DISEASE

REACTIONS (1)
  - Crohn^s disease [Not Recovered/Not Resolved]
